FAERS Safety Report 15116824 (Version 1)
Quarter: 2018Q3

REPORT INFORMATION
  Report Type: Spontaneous
  Country: US (occurrence: US)
  Receive Date: 20180612
  Receipt Date: 20180612
  Transmission Date: 20181010
  Serious: Yes (Hospitalization)
  Sender: FDA-Public Use
  Company Number: None

PATIENT
  Age: 77 Year
  Sex: Male
  Weight: 105.6 kg

DRUGS (2)
  1. PEMBROLIZUMAB 100MG [Suspect]
     Active Substance: PEMBROLIZUMAB
     Indication: SQUAMOUS CELL CARCINOMA OF HEAD AND NECK
     Route: 042
     Dates: start: 20180507, end: 20180529
  2. IMRT [Concomitant]
     Active Substance: RADIATION THERAPY

REACTIONS (5)
  - Body temperature increased [None]
  - Sinusitis [None]
  - Confusional state [None]
  - Pneumonia [None]
  - Asthenia [None]

NARRATIVE: CASE EVENT DATE: 20180606
